FAERS Safety Report 13254299 (Version 1)
Quarter: 2017Q1

REPORT INFORMATION
  Report Type: Report from Study
  Country: None (occurrence: US)
  Receive Date: 20170221
  Receipt Date: 20170221
  Transmission Date: 20170428
  Serious: Yes (Other)
  Sender: FDA-Public Use
  Company Number: US-ABBVIE-16K-163-1821611-00

PATIENT
  Age: 52 Year
  Sex: Male

DRUGS (3)
  1. HUMIRA [Suspect]
     Active Substance: ADALIMUMAB
     Route: 058
     Dates: start: 20170105
  2. HUMIRA [Suspect]
     Active Substance: ADALIMUMAB
     Dosage: DAY 8
     Route: 058
     Dates: start: 20161121, end: 20161121
  3. HUMIRA [Suspect]
     Active Substance: ADALIMUMAB
     Indication: PSORIASIS
     Dosage: DAY 1 LOADING DOSE
     Route: 058
     Dates: start: 20161114, end: 20161114

REACTIONS (13)
  - Skin irritation [Unknown]
  - Anhedonia [Unknown]
  - Joint swelling [Recovered/Resolved]
  - General physical condition abnormal [Unknown]
  - Emotional disorder [Unknown]
  - Device issue [Unknown]
  - Anger [Unknown]
  - Umbilical hernia [Unknown]
  - Emotional distress [Unknown]
  - Frustration tolerance decreased [Unknown]
  - Helplessness [Unknown]
  - Pruritus [Unknown]
  - Pain of skin [Unknown]

NARRATIVE: CASE EVENT DATE: 2016
